FAERS Safety Report 8094490-3 (Version None)
Quarter: 2012Q1

REPORT INFORMATION
  Report Type: 
  Country: None (occurrence: None)
  Receive Date: 20120131
  Receipt Date: 20120125
  Transmission Date: 20120608
  Serious: Yes (Other)
  Sender: FDA-Public Use
  Company Number: NO-PFIZER INC-2012020212

PATIENT
  Age: 64 Year
  Sex: Male

DRUGS (6)
  1. CISATRACURIUM BESYLATE [Suspect]
     Indication: ANAESTHESIA PROCEDURE
     Route: 042
     Dates: start: 20111215, end: 20111215
  2. MIDAZOLAM [Suspect]
     Indication: ANAESTHESIA PROCEDURE
     Route: 042
     Dates: start: 20111215, end: 20111215
  3. SOLU-MEDROL [Suspect]
     Indication: ANEURYSM REPAIR
     Dates: start: 20111215, end: 20111215
  4. THIOPENTAL SODIUM [Suspect]
     Indication: ANAESTHESIA PROCEDURE
     Route: 042
     Dates: start: 20111215, end: 20111215
  5. CHLORHEXIDINE GLUCONATE [Suspect]
     Indication: INFECTION PROPHYLAXIS
     Route: 003
     Dates: start: 20111215, end: 20111215
  6. FENTANYL [Suspect]
     Indication: ANAESTHESIA PROCEDURE
     Route: 042
     Dates: start: 20111215, end: 20111215

REACTIONS (2)
  - URTICARIA [None]
  - BLOOD PRESSURE DECREASED [None]
